FAERS Safety Report 18086082 (Version 1)
Quarter: 2020Q3

REPORT INFORMATION
  Report Type: Spontaneous
  Country: GB (occurrence: GB)
  Receive Date: 20200729
  Receipt Date: 20200729
  Transmission Date: 20201103
  Serious: Yes (Other)
  Sender: FDA-Public Use
  Company Number: GB-ACCORD-193103

PATIENT
  Age: 73 Year
  Sex: Female
  Weight: 64 kg

DRUGS (23)
  1. VENLAFAXINE/VENLAFAXINE HYDROCHLORIDE [Concomitant]
     Active Substance: VENLAFAXINE HYDROCHLORIDE
     Dates: start: 20191030
  2. CETIRIZINE [Concomitant]
     Active Substance: CETIRIZINE HYDROCHLORIDE
     Dosage: AT NIGHT
     Dates: start: 20180109
  3. SALVIA OFFICINALIS [Concomitant]
     Dosage: IN THE MORNING
     Dates: start: 20200708, end: 20200708
  4. OMEPRAZOLE. [Concomitant]
     Active Substance: OMEPRAZOLE
     Dosage: AT 8AM
     Dates: start: 20150303
  5. IBUPROFEN. [Concomitant]
     Active Substance: IBUPROFEN
     Dosage: APPLY UP TO THREE TIMES A DAY
     Dates: start: 20190529, end: 20200708
  6. RIVASTIGMINE/RIVASTIGMINE TARTRATE [Concomitant]
     Active Substance: RIVASTIGMINE
     Dosage: APPLY (ONLY ONE PATCH SHOULD.
     Dates: start: 20150304
  7. COSMOCOL [Concomitant]
     Dosage: ONE OR TWO SACHETS DAILY TO MAINTAIN BOWELS;
     Dates: start: 20190529
  8. PARACETAMOL [Concomitant]
     Active Substance: ACETAMINOPHEN
     Dates: start: 20190521
  9. STALEVO [Concomitant]
     Active Substance: CARBIDOPA\ENTACAPONE\LEVODOPA
     Dosage: ONE TO BE TAKEN AT 8AM, 10AM, 12PM, 2PM, 4PM AN.
     Dates: start: 20160927
  10. HYOSCINE [Concomitant]
     Active Substance: SCOPOLAMINE
     Dosage: TAKE  ONE OR TWO 4 TIMES/DAY
     Dates: start: 20200708
  11. ARIPIPRAZOLE. [Concomitant]
     Active Substance: ARIPIPRAZOLE
     Dosage: 2.5 ML TO TAKE DAILY
     Dates: start: 20191219
  12. CLONAZEPAM. [Concomitant]
     Active Substance: CLONAZEPAM
     Dosage: AT NIGHT
     Dates: start: 20150303
  13. CODEINE [Concomitant]
     Active Substance: CODEINE
     Dates: start: 20160704
  14. ADCAL [Concomitant]
     Dosage: 7.30AM AND 6PM
     Dates: start: 20170411
  15. MEBEVERINE [Concomitant]
     Active Substance: MEBEVERINE
     Dates: start: 20170626
  16. HYDROMOL CREAM [Concomitant]
     Dosage: APPLY TO AFFECTED AREAS AT NIGHT AS A MOISTURISER.
     Dates: start: 20191111, end: 20200708
  17. ROTIGOTINE [Concomitant]
     Active Substance: ROTIGOTINE
     Dosage: PATCH TO BE APPLIED FOR ONE WEEK T...
     Dates: start: 20191219, end: 20200708
  18. CARBIDOPA/LEVODOPA [Concomitant]
     Active Substance: CARBIDOPA\LEVODOPA
     Dosage: AT 20.00
     Dates: start: 20150303
  19. BENSERAZIDE HYDROCHLORIDE/LEVODOPA [Concomitant]
     Active Substance: BENSERAZIDE HYDROCHLORIDE\LEVODOPA
     Dosage: TWO IN THE MORNING, TWO AT DINNER,TWO AT TEATIME.
     Dates: start: 20190308
  20. QUETIAPINE. [Suspect]
     Active Substance: QUETIAPINE
     Indication: PRODUCT USED FOR UNKNOWN INDICATION
     Route: 048
     Dates: start: 20191212, end: 20200605
  21. LACTULOSE. [Concomitant]
     Active Substance: LACTULOSE
     Dosage: 10?30ML TO BE TAKEN ONCE OR TWICE A DAY TO TREA.
     Dates: start: 20190529
  22. MENTHA X PIPERITA [Concomitant]
     Active Substance: HERBALS
     Dosage: BEFORE FOOD 8.
     Dates: start: 20150331
  23. TRAVOPROST. [Concomitant]
     Active Substance: TRAVOPROST
     Dosage: DROP TO BE USED IN THE RIGHT EYE...
     Dates: start: 20190529, end: 20200708

REACTIONS (2)
  - Parkinsonism [Recovered/Resolved]
  - Delirium [Unknown]

NARRATIVE: CASE EVENT DATE: 20191212
